FAERS Safety Report 9479143 (Version 2)
Quarter: 2013Q3

REPORT INFORMATION
  Report Type: Report from Study
  Country: IN (occurrence: IN)
  Receive Date: 20130827
  Receipt Date: 20130827
  Transmission Date: 20140515
  Serious: Yes (Other)
  Sender: FDA-Public Use
  Company Number: IN-BRISTOL-MYERS SQUIBB COMPANY-15797418

PATIENT
  Age: 30 Year
  Sex: Male

DRUGS (3)
  1. WARFARIN SODIUM [Suspect]
     Indication: EMBOLISM
     Route: 048
     Dates: start: 20101030, end: 20110425
  2. ENOXAPARIN [Suspect]
     Indication: EMBOLISM
     Route: 058
     Dates: start: 20101030, end: 20101107
  3. PLACEBO [Suspect]
     Indication: EMBOLISM
     Dosage: APIX:30OCT10-05NOV10,05NOV10-25APR11;ENOXAPARIN:30OCT10-07NOV10;WARF:30OCT10-25APR11
     Route: 048
     Dates: start: 20101030, end: 20110425

REACTIONS (1)
  - Platelet count decreased [Unknown]
